FAERS Safety Report 9907999 (Version 2)
Quarter: 2014Q1

REPORT INFORMATION
  Report Type: Spontaneous
  Country: JP (occurrence: JP)
  Receive Date: 20140219
  Receipt Date: 20140313
  Transmission Date: 20141002
  Serious: Yes (Other)
  Sender: FDA-Public Use
  Company Number: JP-ROCHE-1348629

PATIENT
  Age: 16 Year
  Sex: Male

DRUGS (8)
  1. RITUXIMAB [Suspect]
     Indication: THROMBOTIC THROMBOCYTOPENIC PURPURA
     Dosage: 3 DAYS
     Route: 042
     Dates: start: 20131104, end: 20131119
  2. SOLU-MEDROL [Concomitant]
     Indication: THROMBOTIC THROMBOCYTOPENIC PURPURA
     Route: 042
     Dates: start: 20131101, end: 20131103
  3. PREDONINE [Concomitant]
     Route: 048
     Dates: start: 20131104, end: 20131113
  4. PREDONINE [Concomitant]
     Route: 048
     Dates: start: 20131114
  5. NEXIUM [Concomitant]
     Route: 048
     Dates: start: 20131121
  6. NORVASC [Concomitant]
     Route: 048
     Dates: start: 20131110
  7. BENZALIN [Concomitant]
     Route: 048
     Dates: start: 20131117
  8. AMOBAN [Concomitant]
     Route: 048
     Dates: start: 20131114

REACTIONS (1)
  - Posterior reversible encephalopathy syndrome [Recovered/Resolved]
